FAERS Safety Report 11689889 (Version 2)
Quarter: 2015Q4

REPORT INFORMATION
  Report Type: Spontaneous
  Country: CN (occurrence: CN)
  Receive Date: 20151102
  Receipt Date: 20151103
  Transmission Date: 20160304
  Serious: Yes (Other)
  Sender: FDA-Public Use
  Company Number: CN-OTSUKA-2015_013230

PATIENT

DRUGS (1)
  1. DACOGEN [Suspect]
     Active Substance: DECITABINE
     Indication: ANAEMIA OF CHRONIC DISEASE
     Dosage: 20 ?G, 1 IN 1 DAY
     Route: 042
     Dates: start: 20150420, end: 20150919

REACTIONS (2)
  - Pyrexia [Recovering/Resolving]
  - Liver injury [Unknown]

NARRATIVE: CASE EVENT DATE: 2015
